FAERS Safety Report 21380510 (Version 8)
Quarter: 2022Q4

REPORT INFORMATION
  Report Type: Spontaneous
  Country: ES (occurrence: ES)
  Receive Date: 20220927
  Receipt Date: 20221114
  Transmission Date: 20230113
  Serious: Yes (Death, Hospitalization, Other)
  Sender: FDA-Public Use
  Company Number: ES-BAXTER-2022BAX019235

PATIENT
  Age: 70 Year
  Sex: Male

DRUGS (8)
  1. CYTARABINE [Suspect]
     Active Substance: CYTARABINE
     Indication: Mantle cell lymphoma stage IV
     Dosage: UNK, CYCLIC (RESCUE TREATMENT WITH POLYCHEMOTHERAPY, R-BAC REGIMEN), FREQUENCY TIME : CYCLICAL)
  2. RITUXIMAB [Suspect]
     Active Substance: RITUXIMAB
     Indication: Mantle cell lymphoma stage IV
     Dosage: 1ST LINE CHEMOTHERAPY, R-CHOP REGIMEN, 6 CYCLES
     Route: 065
     Dates: start: 2022
  3. RITUXIMAB [Suspect]
     Active Substance: RITUXIMAB
     Dosage: (RESCUE TREATMENT WITH POLYCHEMOTHERAPY, R-BAC REGIMEN), 2022-ES-2077369 : CYCLICAL)
  4. DOXORUBICIN HYDROCHLORIDE [Suspect]
     Active Substance: DOXORUBICIN HYDROCHLORIDE
     Indication: Mantle cell lymphoma stage IV
     Dosage: 1ST LINE CHEMOTHERAPY, R-CHOP REGIMEN, 6 CYCLES
  5. VINCRISTINE [Suspect]
     Active Substance: VINCRISTINE
     Indication: Mantle cell lymphoma stage IV
     Dosage: 1ST LINE CHEMOTHERAPY, R-CHOP REGIMEN, 6 CYCLES
  6. BENDAMUSTINE HYDROCHLORIDE [Suspect]
     Active Substance: BENDAMUSTINE HYDROCHLORIDE
     Indication: Mantle cell lymphoma stage IV
     Dosage: UNK, RESCUE TREATMENT WITH POLYCHEMOTHERAPY, R-BAC REGIMEN
  7. CYCLOPHOSPHAMIDE [Suspect]
     Active Substance: CYCLOPHOSPHAMIDE
     Indication: Mantle cell lymphoma stage IV
     Dosage: 1ST LINE CHEMOTHERAPY, R-CHOP REGIMEN, 6 CYCLES
  8. PREDNISOLONE [Suspect]
     Active Substance: PREDNISOLONE
     Indication: Mantle cell lymphoma stage IV
     Dosage: 1ST LINE CHEMOTHERAPY, R-CHOP REGIMEN, 6 CYCLES

REACTIONS (16)
  - Pneumonia [Fatal]
  - Pleural effusion [Fatal]
  - General physical health deterioration [Fatal]
  - Neoplasm progression [Fatal]
  - Second primary malignancy [Fatal]
  - Neuroendocrine carcinoma of the skin [Fatal]
  - Pleural effusion [Recovered/Resolved]
  - Cardiac failure [Unknown]
  - Hydronephrosis [Unknown]
  - Urethral obstruction [Unknown]
  - Pathogen resistance [Recovered/Resolved]
  - Pneumonia pseudomonal [Recovered/Resolved]
  - Bone marrow failure [Unknown]
  - Nodule [Unknown]
  - Back pain [Unknown]
  - Scrotal oedema [Not Recovered/Not Resolved]
